FAERS Safety Report 16462351 (Version 2)
Quarter: 2019Q3

REPORT INFORMATION
  Report Type: Spontaneous
  Country: CA (occurrence: CA)
  Receive Date: 20190621
  Receipt Date: 20190916
  Transmission Date: 20191004
  Serious: Yes (Hospitalization, Disabling, Other)
  Sender: FDA-Public Use
  Company Number: CA-PFIZER INC-2019263992

PATIENT
  Age: 41 Year
  Sex: Male
  Weight: 90 kg

DRUGS (47)
  1. ENBREL [Suspect]
     Active Substance: ETANERCEPT
     Indication: RHEUMATOID ARTHRITIS
     Dosage: UNK
     Route: 058
  2. IBUPROFEN. [Suspect]
     Active Substance: IBUPROFEN
     Dosage: 600 MILLIGRAM
     Route: 048
  3. APREMILAST [Suspect]
     Active Substance: APREMILAST
     Indication: PSORIATIC ARTHROPATHY
  4. CICLOSPORIN [Suspect]
     Active Substance: CYCLOSPORINE
     Dosage: UNK
     Route: 048
  5. SIMPONI [Suspect]
     Active Substance: GOLIMUMAB
     Indication: PSORIATIC ARTHROPATHY
     Dosage: UNK
     Route: 058
  6. STELARA [Suspect]
     Active Substance: USTEKINUMAB
     Dosage: UNK
     Route: 058
  7. OXYNEO [Concomitant]
     Active Substance: OXYCODONE
     Dosage: 40 MILLIGRAM
  8. INFLIXIMAB HOSPIRA [Suspect]
     Active Substance: INFLIXIMAB
     Indication: PSORIATIC ARTHROPATHY
     Dosage: UNK
     Route: 065
  9. APREMILAST [Suspect]
     Active Substance: APREMILAST
     Indication: RHEUMATOID ARTHRITIS
     Dosage: 30 MILLIGRAM, BID
     Route: 048
  10. APREMILAST [Suspect]
     Active Substance: APREMILAST
     Indication: PSORIASIS
  11. STELARA [Suspect]
     Active Substance: USTEKINUMAB
     Indication: PSORIATIC ARTHROPATHY
     Dosage: UNK
     Route: 058
  12. BENADRYL [DIPHENHYDRAMINE;PARACETAMOL;PHENYLPROPANOLAMINE HYDROCHLORID [Concomitant]
     Dosage: UNK
  13. GRAVOL [Concomitant]
     Active Substance: DIMENHYDRINATE
     Dosage: UNK
  14. NITRAZEPAM [Concomitant]
     Active Substance: NITRAZEPAM
     Dosage: 50 MILLIGRAM
  15. OXYCODONE HYDROCHLORIDE. [Concomitant]
     Active Substance: OXYCODONE HYDROCHLORIDE
     Dosage: UNK
  16. ULORIC [Concomitant]
     Active Substance: FEBUXOSTAT
     Dosage: 8 MILLIGRAM, BID
     Route: 048
  17. ENBREL [Suspect]
     Active Substance: ETANERCEPT
     Indication: PSORIATIC ARTHROPATHY
  18. SULFASALAZINE. [Suspect]
     Active Substance: SULFASALAZINE
     Dosage: UNK, ENDOCERVICAL
     Route: 065
  19. HUMIRA [Suspect]
     Active Substance: ADALIMUMAB
     Dosage: UNK
     Route: 058
  20. GOLIMUMAB [Suspect]
     Active Substance: GOLIMUMAB
     Indication: PSORIATIC ARTHROPATHY
     Dosage: UNK
     Route: 058
  21. LEFLUNOMIDE. [Suspect]
     Active Substance: LEFLUNOMIDE
     Dosage: UNK
     Route: 048
  22. ULORIC [Concomitant]
     Active Substance: FEBUXOSTAT
     Dosage: UNK
  23. SULFAMETHOXAZOLE [Suspect]
     Active Substance: SULFAMETHOXAZOLE
     Dosage: 600 MILLIGRAM
     Route: 048
  24. APO-IBUPROFEN [Suspect]
     Active Substance: IBUPROFEN
     Dosage: 600 MILLIGRAM
     Route: 048
  25. HUMIRA [Suspect]
     Active Substance: ADALIMUMAB
     Indication: PSORIATIC ARTHROPATHY
     Dosage: UNK
     Route: 065
  26. OTEZLA [Suspect]
     Active Substance: APREMILAST
     Indication: PSORIATIC ARTHROPATHY
     Dosage: UNK
     Route: 065
  27. OTEZLA [Suspect]
     Active Substance: APREMILAST
     Dosage: UNK
     Route: 048
  28. SIMPONI [Suspect]
     Active Substance: GOLIMUMAB
     Dosage: UNK
     Route: 058
  29. DEXILANT [Concomitant]
     Active Substance: DEXLANSOPRAZOLE
     Dosage: UNK
  30. ADALIMUMAB [Suspect]
     Active Substance: ADALIMUMAB
     Indication: PSORIATIC ARTHROPATHY
     Dosage: UNK
     Route: 058
  31. CIMZIA [Suspect]
     Active Substance: CERTOLIZUMAB PEGOL
     Indication: PSORIATIC ARTHROPATHY
     Dosage: UNK
     Route: 058
  32. COLCHICINE. [Concomitant]
     Active Substance: COLCHICINE
     Dosage: 6 MILLIGRAM
     Route: 048
  33. FOLIC ACID. [Concomitant]
     Active Substance: FOLIC ACID
     Dosage: UNK
     Route: 065
  34. MOGADON [Concomitant]
     Active Substance: NITRAZEPAM
     Dosage: 5 MILLIGRAM
  35. ORENCIA [Concomitant]
     Active Substance: ABATACEPT
     Indication: PSORIATIC ARTHROPATHY
     Dosage: UNK
     Route: 058
  36. APO-LEFLUNOMIDE [Suspect]
     Active Substance: LEFLUNOMIDE
     Dosage: UNK
     Route: 065
  37. HUMIRA [Suspect]
     Active Substance: ADALIMUMAB
     Dosage: UNK
     Route: 058
  38. OXYCODONE HYDROCHLORIDE. [Concomitant]
     Active Substance: OXYCODONE HYDROCHLORIDE
     Dosage: 10 MILLIGRAM AND 40 MILLIGRAM
  39. MOTRIN [Suspect]
     Active Substance: IBUPROFEN
     Dosage: 6 DOSAGE FORM, QD
     Route: 048
  40. USTEKINUMAB [Suspect]
     Active Substance: USTEKINUMAB
     Indication: PSORIATIC ARTHROPATHY
     Dosage: UNK
     Route: 065
  41. FEBUXOSTAT. [Concomitant]
     Active Substance: FEBUXOSTAT
     Dosage: UNK
  42. OXYCODONE HYDROCHLORIDE. [Concomitant]
     Active Substance: OXYCODONE HYDROCHLORIDE
     Dosage: UNK
  43. ULORIC [Concomitant]
     Active Substance: FEBUXOSTAT
     Dosage: UNK
  44. ENBREL [Suspect]
     Active Substance: ETANERCEPT
     Indication: PSORIASIS
  45. CICLOSPORIN [Suspect]
     Active Substance: CYCLOSPORINE
     Dosage: UNK
     Route: 065
  46. MOTRIN [Suspect]
     Active Substance: IBUPROFEN
     Dosage: 600 MILLIGRAM
     Route: 048
  47. METHOTREXATE. [Concomitant]
     Active Substance: METHOTREXATE
     Dosage: 4 DOSAGE FORM, QWK

REACTIONS (19)
  - Psoriatic arthropathy [Unknown]
  - Aspartate aminotransferase increased [Unknown]
  - Enthesopathy [Unknown]
  - Loss of personal independence in daily activities [Unknown]
  - Headache [Unknown]
  - Tendonitis [Unknown]
  - Tongue disorder [Unknown]
  - Synovitis [Unknown]
  - Alanine aminotransferase increased [Unknown]
  - Contraindicated product administered [Unknown]
  - Nausea [Unknown]
  - Drug intolerance [Unknown]
  - Generalised erythema [Unknown]
  - Treatment failure [Unknown]
  - C-reactive protein abnormal [Unknown]
  - Drug hypersensitivity [Unknown]
  - Drug ineffective [Unknown]
  - Alanine aminotransferase abnormal [Unknown]
  - Tenosynovitis [Unknown]
